FAERS Safety Report 11102772 (Version 3)
Quarter: 2020Q3

REPORT INFORMATION
  Report Type: Spontaneous
  Country: HU (occurrence: HU)
  Receive Date: 20150511
  Receipt Date: 20150603
  Transmission Date: 20201104
  Serious: Yes (Other)
  Sender: FDA-Public Use
  Company Number: HU-ROCHE-1573375

PATIENT
  Age: 60 Year
  Sex: Female
  Weight: 85 kg

DRUGS (6)
  1. IBANDRONIC ACID. [Suspect]
     Active Substance: IBANDRONIC ACID
     Indication: OSTEOPOROSIS POSTMENOPAUSAL
     Route: 048
     Dates: start: 201409, end: 201501
  2. BONVIVA [Suspect]
     Active Substance: IBANDRONATE SODIUM
     Indication: OSTEOPOROSIS POSTMENOPAUSAL
     Route: 048
     Dates: end: 201409
  3. MAGNE B6 [Concomitant]
     Active Substance: MAGNESIUM\PYRIDOXINE
  4. CITROKALCIUM [Concomitant]
     Indication: OSTEOPOROSIS
  5. FLECTOR [Concomitant]
     Active Substance: DICLOFENAC EPOLAMINE
  6. VITAMIN D3 [Concomitant]
     Active Substance: CHOLECALCIFEROL
     Indication: OSTEOPOROSIS

REACTIONS (10)
  - Malaise [Unknown]
  - Stomatitis [Not Recovered/Not Resolved]
  - Tooth loss [Not Recovered/Not Resolved]
  - Asthenia [Unknown]
  - Toothache [Not Recovered/Not Resolved]
  - Groin pain [Unknown]
  - Decreased appetite [Unknown]
  - Pain in jaw [Not Recovered/Not Resolved]
  - Hypoaesthesia [Unknown]
  - Bone loss [Not Recovered/Not Resolved]

NARRATIVE: CASE EVENT DATE: 201410
